FAERS Safety Report 8165251-1 (Version None)
Quarter: 2012Q1

REPORT INFORMATION
  Report Type: 
  Country: None (occurrence: None)
  Receive Date: 20120222
  Receipt Date: 20120222
  Transmission Date: 20120608
  Serious: Yes (Other)
  Sender: FDA-Public Use
  Company Number: None

PATIENT
  Sex: Female
  Weight: 108.8633 kg

DRUGS (1)
  1. LISINOPRIL [Suspect]
     Indication: BLOOD PRESSURE
     Dosage: 10 + 20 MG TAB 1 DAILY MOUTH
     Route: 048
     Dates: start: 20110101

REACTIONS (2)
  - RASH [None]
  - PRURITUS [None]
